FAERS Safety Report 17108947 (Version 6)
Quarter: 2021Q1

REPORT INFORMATION
  Report Type: Other
  Country: US (occurrence: US)
  Receive Date: 20191204
  Receipt Date: 20210120
  Transmission Date: 20210419
  Serious: Yes (Hospitalization, Other)
  Sender: FDA-Public Use
  Company Number: US-ROCHE-2325455

PATIENT
  Age: 51 Year
  Sex: Male
  Weight: 110.32 kg

DRUGS (36)
  1. OCREVUS [Suspect]
     Active Substance: OCRELIZUMAB
     Indication: SECONDARY PROGRESSIVE MULTIPLE SCLEROSIS
     Dosage: HALF DOSES?SECOND HALF DOSE RECEIVED ON 18/DEC/2018
     Route: 042
     Dates: start: 20181204, end: 20181218
  2. LYRICA [Suspect]
     Active Substance: PREGABALIN
     Route: 065
     Dates: start: 202011
  3. XARELTO [Concomitant]
     Active Substance: RIVAROXABAN
     Indication: DEEP VEIN THROMBOSIS
     Dosage: TAKES 5 PM
     Route: 048
  4. VITAMIN D3 [Concomitant]
     Active Substance: CHOLECALCIFEROL
     Indication: MULTIPLE SCLEROSIS
     Route: 048
     Dates: start: 2019
  5. ALLEGRA [Concomitant]
     Active Substance: FEXOFENADINE HYDROCHLORIDE
     Indication: HYPERSENSITIVITY
     Route: 048
  6. DRONABINOL. [Concomitant]
     Active Substance: DRONABINOL
     Indication: PAIN
     Dosage: TAKES EVERY 4 HOURS
  7. VOLTAREN [Suspect]
     Active Substance: DICLOFENAC SODIUM
     Route: 061
  8. VENTOLIN HFA [Concomitant]
     Active Substance: ALBUTEROL SULFATE
     Indication: ASTHMA
     Dosage: 2 PUFFS 4 TIMES DAILY
     Route: 055
  9. SEROQUEL [Concomitant]
     Active Substance: QUETIAPINE FUMARATE
     Route: 048
     Dates: start: 2020
  10. DRONABINOL. [Concomitant]
     Active Substance: DRONABINOL
     Route: 048
  11. BACLOFEN. [Concomitant]
     Active Substance: BACLOFEN
     Dosage: THREE 10 MG PILLS AT ONCE
     Route: 048
     Dates: start: 202011
  12. TROKENDI XR [Concomitant]
     Active Substance: TOPIRAMATE
     Indication: MIGRAINE
     Route: 048
     Dates: start: 2016
  13. OCREVUS [Suspect]
     Active Substance: OCRELIZUMAB
     Indication: PRIMARY PROGRESSIVE MULTIPLE SCLEROSIS
     Route: 042
     Dates: start: 201812, end: 20200709
  14. OMEPRAZOLE. [Concomitant]
     Active Substance: OMEPRAZOLE
     Indication: GASTROOESOPHAGEAL REFLUX DISEASE
     Dosage: TAKES AT 5 PM
     Route: 048
  15. SEROQUEL [Concomitant]
     Active Substance: QUETIAPINE FUMARATE
     Indication: POST-TRAUMATIC STRESS DISORDER
     Dosage: MENTAL ILLNESS
     Route: 048
  16. MARINOL [Concomitant]
     Active Substance: DRONABINOL
     Indication: PAIN
  17. TRAZODONE [Concomitant]
     Active Substance: TRAZODONE HYDROCHLORIDE
     Dosage: BEDTIME
     Dates: start: 2017
  18. AMANTADINE. [Concomitant]
     Active Substance: AMANTADINE HYDROCHLORIDE
     Indication: MULTIPLE SCLEROSIS
     Dosage: KEEP AWAKE?TAKE IN MORNING
     Route: 048
     Dates: start: 201906
  19. MARINOL [Concomitant]
     Active Substance: DRONABINOL
     Indication: PAIN
     Dosage: ONGOING YES
  20. OMEPRAZOLE. [Concomitant]
     Active Substance: OMEPRAZOLE
     Route: 048
  21. XARELTO [Concomitant]
     Active Substance: RIVAROXABAN
     Indication: ANTICOAGULANT THERAPY
  22. PRIMIDONE. [Concomitant]
     Active Substance: PRIMIDONE
     Indication: TREMOR
     Dosage: 150 MG AT BEDTIME
     Route: 048
     Dates: start: 2019
  23. PRIMIDONE. [Concomitant]
     Active Substance: PRIMIDONE
     Indication: MULTIPLE SCLEROSIS
     Route: 048
     Dates: start: 2017
  24. AMANTADINE. [Concomitant]
     Active Substance: AMANTADINE HYDROCHLORIDE
     Route: 048
     Dates: start: 2018
  25. BACLOFEN. [Concomitant]
     Active Substance: BACLOFEN
     Indication: MUSCLE SPASMS
     Route: 048
  26. MARINOL [Concomitant]
     Active Substance: DRONABINOL
     Indication: NAUSEA
     Route: 048
     Dates: start: 2014
  27. OCREVUS [Suspect]
     Active Substance: OCRELIZUMAB
     Indication: RELAPSING MULTIPLE SCLEROSIS
     Route: 042
     Dates: start: 201912
  28. AIRBORNE [Suspect]
     Active Substance: HERBALS\MINERALS\VITAMINS
     Indication: PRODUCT USED FOR UNKNOWN INDICATION
     Route: 048
     Dates: start: 2020
  29. ARIPIPRAZOLE. [Concomitant]
     Active Substance: ARIPIPRAZOLE
     Indication: DEPRESSION
     Dates: start: 2017
  30. ALLEGRA [Concomitant]
     Active Substance: FEXOFENADINE HYDROCHLORIDE
     Indication: HYPERSENSITIVITY
     Route: 048
     Dates: start: 202006
  31. TROKENDI XR [Concomitant]
     Active Substance: TOPIRAMATE
     Route: 048
     Dates: start: 2018
  32. VOLTAREN [Suspect]
     Active Substance: DICLOFENAC SODIUM
     Indication: NEURALGIA
     Route: 065
     Dates: start: 2018
  33. SOLU?MEDROL [Suspect]
     Active Substance: METHYLPREDNISOLONE SODIUM SUCCINATE
     Indication: PRODUCT USED FOR UNKNOWN INDICATION
     Route: 042
  34. LYRICA [Suspect]
     Active Substance: PREGABALIN
     Indication: NEURALGIA
     Route: 048
     Dates: start: 202011
  35. VENTOLIN HFA [Concomitant]
     Active Substance: ALBUTEROL SULFATE
     Dosage: 4 TIMES DAILY AS NEEDED
     Route: 055
  36. CALTRATE [Concomitant]
     Active Substance: CALCIUM CARBONATE
     Indication: GASTRIC BYPASS
     Dosage: 600+D3 2 A DAY
     Route: 048

REACTIONS (28)
  - Muscular weakness [Recovered/Resolved]
  - Throat tightness [Unknown]
  - Wrong technique in product usage process [Unknown]
  - Erythema [Not Recovered/Not Resolved]
  - Influenza [Not Recovered/Not Resolved]
  - Weight decreased [Unknown]
  - Blood glucose increased [Recovering/Resolving]
  - Amnesia [Recovered/Resolved]
  - Pain [Unknown]
  - Tremor [Recovered/Resolved]
  - Multiple sclerosis [Unknown]
  - Pain in extremity [Recovered/Resolved]
  - Localised infection [Not Recovered/Not Resolved]
  - Oropharyngeal pain [Recovered/Resolved]
  - Musculoskeletal stiffness [Not Recovered/Not Resolved]
  - Bradycardia [Recovered/Resolved]
  - Dyskinesia [Not Recovered/Not Resolved]
  - Sensory disturbance [Not Recovered/Not Resolved]
  - Cataract [Not Recovered/Not Resolved]
  - Rhinorrhoea [Not Recovered/Not Resolved]
  - Cough [Not Recovered/Not Resolved]
  - Drug ineffective [Unknown]
  - Occult blood positive [Unknown]
  - Multiple sclerosis relapse [Recovered/Resolved]
  - Pruritus [Not Recovered/Not Resolved]
  - Fall [Unknown]
  - Asthenia [Recovered/Resolved]
  - Therapeutic product effect decreased [Unknown]

NARRATIVE: CASE EVENT DATE: 201901
